FAERS Safety Report 14715889 (Version 2)
Quarter: 2018Q2

REPORT INFORMATION
  Report Type: Spontaneous
  Country: US (occurrence: US)
  Receive Date: 20180404
  Receipt Date: 20180622
  Transmission Date: 20180711
  Serious: Yes (Hospitalization)
  Sender: FDA-Public Use
  Company Number: US-PFIZER INC-2018135443

PATIENT
  Sex: Female

DRUGS (2)
  1. XELJANZ XR [Suspect]
     Active Substance: TOFACITINIB CITRATE
     Dosage: UNK
     Dates: start: 2017
  2. ZYRTEC [Suspect]
     Active Substance: CETIRIZINE HYDROCHLORIDE
     Indication: HYPERSENSITIVITY
     Dosage: UNK

REACTIONS (4)
  - Influenza [Recovered/Resolved]
  - Fall [Recovered/Resolved]
  - Concussion [Recovered/Resolved]
  - Memory impairment [Recovered/Resolved]
